FAERS Safety Report 14558389 (Version 1)
Quarter: 2018Q1

REPORT INFORMATION
  Report Type: Spontaneous
  Country: US (occurrence: US)
  Receive Date: 20180221
  Receipt Date: 20180221
  Transmission Date: 20180509
  Serious: No
  Sender: FDA-Public Use
  Company Number: US-PERRIGO-17US025873

PATIENT
  Age: 90 Year
  Sex: Female
  Weight: 47.62 kg

DRUGS (1)
  1. LOPERAMIDE HYDROCHLORIDE. [Suspect]
     Active Substance: LOPERAMIDE HYDROCHLORIDE
     Indication: FAECES SOFT
     Dosage: 2 MG AFTER 1ST SOFT STOOL, 1 MG AFTER SECOND SOFT STOOL
     Route: 048
     Dates: start: 20170808, end: 20170808

REACTIONS (1)
  - Off label use [Recovered/Resolved]

NARRATIVE: CASE EVENT DATE: 20170808
